FAERS Safety Report 4804056-3 (Version None)
Quarter: 2005Q4

REPORT INFORMATION
  Report Type: 
  Country: None (occurrence: None)
  Receive Date: 20051018
  Receipt Date: 20051018
  Transmission Date: 20060501
  Serious: Yes (Other)
  Sender: FDA-Public Use
  Company Number: None

PATIENT
  Age: 47 Year
  Sex: Female
  Weight: 90.7194 kg

DRUGS (2)
  1. METFORMIN [Suspect]
     Indication: DIABETES MELLITUS
     Dosage: 500 MG PO BID
     Route: 048
     Dates: start: 20010101
  2. GLYBURIDE [Concomitant]

REACTIONS (2)
  - DIARRHOEA [None]
  - ORAL DISCOMFORT [None]
